FAERS Safety Report 5625004-2 (Version None)
Quarter: 2008Q1

REPORT INFORMATION
  Report Type: 
  Country: None (occurrence: None)
  Receive Date: 20080208
  Receipt Date: 20080201
  Transmission Date: 20080703
  Serious: Yes (Death, Hospitalization)
  Sender: FDA-Public Use
  Company Number: 056-C5013-07080073

PATIENT
  Age: 74 Year
  Sex: Female
  Weight: 81 kg

DRUGS (2)
  1. CC-5013 (LENALIDOMIDE) (CAPSULES) [Suspect]
     Indication: MULTIPLE MYELOMA
     Dosage: 25 MG, DAILY, ORAL
     Route: 048
     Dates: start: 20070717, end: 20070724
  2. ANTI-DIABETIC (ANTI-DIABETICS) [Concomitant]

REACTIONS (4)
  - BLOOD POTASSIUM INCREASED [None]
  - CHEST X-RAY ABNORMAL [None]
  - PANCYTOPENIA [None]
  - RENAL FAILURE [None]
